FAERS Safety Report 7194795-4 (Version None)
Quarter: 2010Q4

REPORT INFORMATION
  Report Type: 
  Country: None (occurrence: None)
  Receive Date: 20101223
  Receipt Date: 20101214
  Transmission Date: 20110411
  Serious: Yes (Hospitalization)
  Sender: FDA-Public Use
  Company Number: GB-ELI_LILLY_AND_COMPANY-GB201012003610

PATIENT
  Sex: Male

DRUGS (1)
  1. ZYPADHERA [Suspect]
     Dosage: 210 MG, UNK
     Dates: start: 20100101

REACTIONS (2)
  - AGGRESSION [None]
  - CONDITION AGGRAVATED [None]
